FAERS Safety Report 13985291 (Version 1)
Quarter: 2017Q3

REPORT INFORMATION
  Report Type: Spontaneous
  Country: GB (occurrence: GB)
  Receive Date: 20170919
  Receipt Date: 20170919
  Transmission Date: 20171128
  Serious: Yes (Other)
  Sender: FDA-Public Use
  Company Number: GB-009507513-1709GBR007616

PATIENT
  Age: 2 Year
  Sex: Male

DRUGS (4)
  1. BECLOMETHASONE DIPROPIONATE [Concomitant]
     Active Substance: BECLOMETHASONE DIPROPIONATE
     Dosage: 100 MICROGRAM, BID, CFC FREE INHALER
     Route: 055
  2. MONTELUKAST SODIUM. [Suspect]
     Active Substance: MONTELUKAST SODIUM
     Indication: WHEEZING
     Dosage: 4 MICROGRAM QD, AT NIGHT, SACHETS SUGAR FREE
     Route: 048
     Dates: start: 201609, end: 201708
  3. DIPROBASE [Concomitant]
     Active Substance: CHLOROCRESOL
     Dosage: UNK
  4. ALBUTEROL. [Concomitant]
     Active Substance: ALBUTEROL
     Dosage: 200 MICROGRAM, UNK, INHALER CFC FREE
     Route: 055

REACTIONS (1)
  - Essential tremor [Recovering/Resolving]

NARRATIVE: CASE EVENT DATE: 201706
